FAERS Safety Report 4835428-9 (Version None)
Quarter: 2005Q4

REPORT INFORMATION
  Report Type: 
  Country: None (occurrence: None)
  Receive Date: 20051118
  Receipt Date: 20051103
  Transmission Date: 20060501
  Serious: Yes (Other)
  Sender: FDA-Public Use
  Company Number: PHBS2005FR15381

PATIENT
  Sex: 0
  Weight: 2 kg

DRUGS (4)
  1. NICARDIPINE HCL [Suspect]
     Dosage: TRANSPLACENTAL
     Route: 064
  2. SALBUTAMOL (NGX) (SALBUTAMOL) [Suspect]
     Dosage: TRANSPLACENTAL
     Route: 064
  3. TRACTOCILE (ATOSIBAN) [Suspect]
     Dosage: TRANSPLACENTAL
     Route: 064
  4. FUROSEMIDE [Suspect]
     Dosage: TRANSPLACENTAL
     Route: 064

REACTIONS (4)
  - CAESAREAN SECTION [None]
  - DRUG EXPOSURE DURING PREGNANCY [None]
  - PREMATURE BABY [None]
  - TWIN PREGNANCY [None]
